FAERS Safety Report 21197451 (Version 3)
Quarter: 2022Q3

REPORT INFORMATION
  Report Type: Spontaneous
  Country: US (occurrence: US)
  Receive Date: 20220810
  Receipt Date: 20220816
  Transmission Date: 20221027
  Serious: No
  Sender: FDA-Public Use
  Company Number: US-SA-SAC20220804001973

PATIENT
  Age: 54 Year
  Sex: Female
  Weight: 117 kg

DRUGS (2)
  1. DUPIXENT [Suspect]
     Active Substance: DUPILUMAB
     Indication: Asthma
     Dosage: 600 MG, 1X
     Route: 058
     Dates: start: 20220725, end: 20220725
  2. DUPIXENT [Suspect]
     Active Substance: DUPILUMAB
     Dosage: 300MG , QOW
     Route: 058
     Dates: start: 2022

REACTIONS (2)
  - Injection site pain [Unknown]
  - Injection site bruising [Not Recovered/Not Resolved]

NARRATIVE: CASE EVENT DATE: 20220725
